FAERS Safety Report 23746599 (Version 1)
Quarter: 2024Q2

REPORT INFORMATION
  Report Type: Spontaneous
  Country: GB (occurrence: GB)
  Receive Date: 20240416
  Receipt Date: 20240416
  Transmission Date: 20240716
  Serious: Yes (Disabling)
  Sender: FDA-Public Use
  Company Number: GB-002147023-NVSC2024GB003135

PATIENT
  Age: 75 Year
  Sex: Female
  Weight: 79 kg

DRUGS (4)
  1. INCLISIRAN [Suspect]
     Active Substance: INCLISIRAN
     Indication: Transient ischaemic attack
     Dosage: UNK
     Route: 058
     Dates: start: 20240124, end: 20240124
  2. APIXABAN [Concomitant]
     Active Substance: APIXABAN
     Indication: Transient ischaemic attack
     Dosage: UNK, BID
     Route: 048
     Dates: start: 2021
  3. CANDESARTAN [Concomitant]
     Active Substance: CANDESARTAN
     Indication: Hypertension
     Dosage: UNK, QD
     Route: 048
     Dates: start: 2021
  4. FELODIPINE [Concomitant]
     Active Substance: FELODIPINE
     Indication: Hypertension
     Dosage: UNK, QD
     Route: 048
     Dates: start: 2023

REACTIONS (5)
  - Neuromyopathy [Recovering/Resolving]
  - Pain [Unknown]
  - Myalgia [Unknown]
  - Therapeutic response decreased [Unknown]
  - Off label use [Unknown]

NARRATIVE: CASE EVENT DATE: 20240203
